FAERS Safety Report 8238247-9 (Version None)
Quarter: 2012Q1

REPORT INFORMATION
  Report Type: 
  Country: None (occurrence: None)
  Receive Date: 20120326
  Receipt Date: 20120316
  Transmission Date: 20120608
  Serious: Yes (Death)
  Sender: FDA-Public Use
  Company Number: WAES 1202USA01597

PATIENT
  Age: 51 Year
  Sex: Male

DRUGS (6)
  1. KOGENATE [Concomitant]
  2. ISENTRESS [Suspect]
     Indication: HIV INFECTION
     Dosage: 800 MG/DAILY
     Route: 048
     Dates: start: 20080926, end: 20101230
  3. VIREAD [Suspect]
     Indication: HIV INFECTION
     Dosage: 300 MG/DAILY, PO
     Route: 048
     Dates: start: 20091002, end: 20101230
  4. ANTIHEMOPHILIC FACTOR (HUMAN) [Concomitant]
  5. NORVIR [Suspect]
     Indication: HIV INFECTION
     Dosage: 200 MG/DAILY, PO
     Route: 048
     Dates: start: 20080926, end: 20101230
  6. PREZISTA [Suspect]
     Indication: HIV INFECTION
     Dosage: 1200 MG/DAILY, PO
     Route: 048
     Dates: start: 20080926, end: 20101230

REACTIONS (1)
  - DEATH [None]
